FAERS Safety Report 4915035-X (Version None)
Quarter: 2006Q1

REPORT INFORMATION
  Report Type: 
  Country: None (occurrence: None)
  Receive Date: 20060215
  Receipt Date: 20060215
  Transmission Date: 20060701
  Serious: Yes (Other)
  Sender: FDA-Public Use
  Company Number: None

PATIENT
  Age: 6 Year
  Sex: Female
  Weight: 17.2367 kg

DRUGS (1)
  1. CHILDREN'S MOTRIN [Suspect]
     Indication: PYREXIA
     Dosage: 7.5 ML   1X  PO;  { 4ML  1X  PO
     Route: 048
     Dates: start: 20051220, end: 20051220

REACTIONS (6)
  - EYE SWELLING [None]
  - PYREXIA [None]
  - RASH ERYTHEMATOUS [None]
  - SOMNOLENCE [None]
  - SWELLING FACE [None]
  - VOMITING [None]
